FAERS Safety Report 7327894-4 (Version None)
Quarter: 2011Q1

REPORT INFORMATION
  Report Type: 
  Country: None (occurrence: None)
  Receive Date: 20110224
  Receipt Date: 20110224
  Transmission Date: 20110831
  Serious: Yes (Death)
  Sender: FDA-Public Use
  Company Number: None

PATIENT
  Age: 59 Year
  Sex: Male
  Weight: 90.7194 kg

DRUGS (2)
  1. ALPRAZOLAM [Suspect]
     Indication: POST-TRAUMATIC STRESS DISORDER
     Dosage: .25MG AS NEEDED 1-2 ORAL
     Route: 048
     Dates: start: 20090811
  2. CLONAZEPAM [Suspect]
     Indication: POST-TRAUMATIC STRESS DISORDER
     Dosage: 1 MG 2-3 @ DAY ORAL
     Route: 048
     Dates: start: 20090725, end: 20090810

REACTIONS (2)
  - DYSPNOEA [None]
  - ARRHYTHMIA [None]
